FAERS Safety Report 10736914 (Version 3)
Quarter: 2015Q1

REPORT INFORMATION
  Report Type: Report from Study
  Country: CN (occurrence: CN)
  Receive Date: 20150126
  Receipt Date: 20150223
  Transmission Date: 20150721
  Serious: Yes (Hospitalization)
  Sender: FDA-Public Use
  Company Number: CN-ELI_LILLY_AND_COMPANY-CN201501005011

PATIENT
  Age: 59 Year
  Sex: Male
  Weight: 62 kg

DRUGS (16)
  1. CISPLATIN. [Concomitant]
     Active Substance: CISPLATIN
     Indication: NON-SMALL CELL LUNG CANCER
     Dosage: 75 MG/M2, DAY 1 EVERY 21 DAYS
     Route: 042
     Dates: start: 20141128
  2. MANNITOL. [Concomitant]
     Active Substance: MANNITOL
     Indication: NUTRITIONAL SUPPLEMENTATION
     Dosage: 125 ML, QD
     Route: 065
     Dates: start: 20141208, end: 20141212
  3. GLUTATHIONE [Concomitant]
     Active Substance: GLUTATHIONE
     Indication: PROPHYLAXIS
     Dosage: 2.4 G, QD
     Route: 065
     Dates: start: 20141203, end: 20141213
  4. SODIUM BICARBONATE. [Concomitant]
     Active Substance: SODIUM BICARBONATE
     Indication: PROPHYLAXIS
     Dosage: 125 ML, SINGLE
     Route: 065
     Dates: start: 20141128, end: 20141128
  5. PEMETREXED [Suspect]
     Active Substance: PEMETREXED
     Indication: NON-SMALL CELL LUNG CANCER
     Dosage: 500 MG/M2, DAY 1 EVERY 21 DAYS
     Route: 042
     Dates: start: 20141128
  6. POTASSIUM CHLORIDE. [Concomitant]
     Active Substance: POTASSIUM CHLORIDE
     Indication: PROPHYLAXIS
     Dosage: 10 ML, SINGLE
     Route: 065
     Dates: start: 20141128, end: 20141128
  7. VITAMIN B 6 [Concomitant]
     Indication: PROPHYLAXIS
     Dosage: 200 MG, SINGLE
     Route: 065
     Dates: start: 20141129, end: 20141129
  8. MANNITOL. [Concomitant]
     Active Substance: MANNITOL
     Indication: NON-SMALL CELL LUNG CANCER
     Dosage: 125 ML, EVERY 12 HOURS
     Route: 065
     Dates: start: 20141203, end: 20141208
  9. DEXAMETHASONE SODIUM PHOSPHATE. [Concomitant]
     Active Substance: DEXAMETHASONE SODIUM PHOSPHATE
     Dosage: 5 MG, UNK
     Route: 065
     Dates: start: 20141128, end: 20141128
  10. TROXIPIDE [Concomitant]
     Active Substance: TROXIPIDE
     Indication: PROPHYLAXIS
     Dosage: 0.1 G, TID
     Route: 065
     Dates: start: 20141203, end: 20141215
  11. METACLOP-P [Concomitant]
     Indication: PROPHYLAXIS
     Dosage: 10 MG, SINGLE
     Route: 065
     Dates: start: 20141128, end: 20141128
  12. LOSEC [Concomitant]
     Active Substance: OMEPRAZOLE
     Indication: PROPHYLAXIS
     Dosage: 40 MG, QD
     Route: 065
     Dates: start: 20141203, end: 20141213
  13. PALONOSETRON [Concomitant]
     Active Substance: PALONOSETRON
     Indication: PROPHYLAXIS
     Dosage: 0.25 MG, SINGLE
     Route: 065
     Dates: start: 20141128, end: 20141128
  14. ONDANSETRON [Concomitant]
     Active Substance: ONDANSETRON
     Indication: PROPHYLAXIS
     Dosage: 8 MG, BID
     Route: 065
     Dates: start: 20141128, end: 20141128
  15. MANNITOL. [Concomitant]
     Active Substance: MANNITOL
     Indication: INTRACRANIAL PRESSURE INCREASED
     Dosage: 125 ML, EVERY 12 HOURS
     Route: 065
     Dates: start: 20141129, end: 20141201
  16. DEXAMETHASONE SODIUM PHOSPHATE. [Concomitant]
     Active Substance: DEXAMETHASONE SODIUM PHOSPHATE
     Indication: NON-SMALL CELL LUNG CANCER
     Dosage: 5 MG, QD
     Route: 065
     Dates: start: 20141204, end: 20141209

REACTIONS (1)
  - Malignant neoplasm progression [Recovered/Resolved]

NARRATIVE: CASE EVENT DATE: 20141203
